FAERS Safety Report 9607461 (Version 2)
Quarter: 2013Q4

REPORT INFORMATION
  Report Type: Report from Study
  Country: NO (occurrence: NO)
  Receive Date: 20131009
  Receipt Date: 20131030
  Transmission Date: 20140711
  Serious: Yes (Other)
  Sender: FDA-Public Use
  Company Number: NO-ACCORD-019656

PATIENT
  Sex: Female

DRUGS (2)
  1. LEVETIRACETAM [Suspect]
     Indication: EPILEPSY
     Dosage: INCREASED TO 2500 MG/DAY
     Route: 048
  2. TOPIRAMATE [Suspect]
     Indication: EPILEPSY
     Dosage: 450 MG PER DAY AND IN THIRD TRIMESTER OF PREGNANCY
     Route: 048

REACTIONS (3)
  - Exposure during pregnancy [Recovered/Resolved]
  - Grand mal convulsion [Unknown]
  - Drug level decreased [Unknown]
